FAERS Safety Report 18472653 (Version 1)
Quarter: 2020Q4

REPORT INFORMATION
  Report Type: Spontaneous
  Country: AT (occurrence: AT)
  Receive Date: 20201106
  Receipt Date: 20201106
  Transmission Date: 20210114
  Serious: Yes (Other)
  Sender: FDA-Public Use
  Company Number: AT-ACCORD-204430

PATIENT
  Sex: Female
  Weight: 57 kg

DRUGS (1)
  1. IBANDRONIC ACID ACCORD [Suspect]
     Active Substance: IBANDRONIC ACID
     Indication: PRODUCT USED FOR UNKNOWN INDICATION
     Dosage: INJECTION SYRINGE, STRENGTH-3 MG

REACTIONS (5)
  - Mastication disorder [Recovered/Resolved]
  - Immobile [Recovered/Resolved]
  - Feeling abnormal [Recovered/Resolved]
  - Pain [Recovered/Resolved]
  - Respiratory rate decreased [Recovered/Resolved]
